FAERS Safety Report 5113917-X (Version None)
Quarter: 2006Q3

REPORT INFORMATION
  Report Type: 
  Country: None (occurrence: None)
  Receive Date: 20060921
  Receipt Date: 20060914
  Transmission Date: 20061208
  Serious: Yes (Other)
  Sender: FDA-Public Use
  Company Number: HQWYE252216JUN06

PATIENT
  Age: 79 Year
  Sex: Female

DRUGS (7)
  1. MYLOTARG [Suspect]
     Indication: ACUTE MYELOID LEUKAEMIA
     Dosage: A SINGLE 7.1 MG/M^2 DOSE
     Route: 041
     Dates: start: 20060113, end: 20060113
  2. ZANTAC [Concomitant]
  3. LENDORM [Concomitant]
  4. DIFLUCAN [Concomitant]
  5. SOLON (SOFALCONE) [Concomitant]
  6. MAGNESIUM OXIDE [Concomitant]
  7. ZOLPIDEM TARTRATE [Concomitant]

REACTIONS (7)
  - ACUTE MYELOID LEUKAEMIA [None]
  - BLAST CELL COUNT INCREASED [None]
  - BLOOD LACTATE DEHYDROGENASE INCREASED [None]
  - C-REACTIVE PROTEIN INCREASED [None]
  - DISEASE PROGRESSION [None]
  - MYELOBLAST COUNT INCREASED [None]
  - PYREXIA [None]
